FAERS Safety Report 6072938-3 (Version None)
Quarter: 2009Q1

REPORT INFORMATION
  Report Type: 
  Country: None (occurrence: None)
  Receive Date: 20090206
  Receipt Date: 20090122
  Transmission Date: 20090719
  Serious: Yes (Other)
  Sender: FDA-Public Use
  Company Number: 2008S1008208

PATIENT
  Sex: Female

DRUGS (4)
  1. ZIDOVUDINE [Suspect]
     Dosage: 600 MG; DAILY; ORAL
     Route: 048
     Dates: start: 20080201
  2. LAMIVUDINE [Suspect]
     Dosage: 300 MG; DAILY; ORAL
     Route: 048
     Dates: start: 20080201
  3. REYATAZ [Suspect]
     Dosage: 300 MG; DAILY; ORAL
     Route: 048
     Dates: start: 20080201
  4. RITONAVIR [Suspect]
     Dosage: 100 MG; DAILY; ORAL
     Route: 048
     Dates: start: 20080201

REACTIONS (1)
  - DRUG EXPOSURE DURING PREGNANCY [None]
